FAERS Safety Report 5984829-4 (Version None)
Quarter: 2008Q4

REPORT INFORMATION
  Report Type: 
  Country: None (occurrence: None)
  Receive Date: 20081202
  Receipt Date: 20081127
  Transmission Date: 20090506
  Serious: Yes (Life-Threatening, Hospitalization)
  Sender: FDA-Public Use
  Company Number: GXKR2008DE11291

PATIENT
  Age: 83 Year
  Sex: Female
  Weight: 64 kg

DRUGS (9)
  1. BISOPROLOL (NGX) (BISOPROLOL) TABLET [Suspect]
     Indication: CORONARY ARTERY DISEASE
     Dosage: 1.25 MG, QD, ORAL
     Route: 048
  2. RAMIPRIL [Suspect]
     Indication: CARDIAC FAILURE
     Dosage: 5 MG, BID, ORAL
     Route: 048
  3. PROTAPHAN (INSULIN ISOPHANE, HUMAN BIOSYNTHETIC) INJECTION [Suspect]
     Indication: TYPE 2 DIABETES MELLITUS
     Dosage: 30 IU, QD, SUBCUTANEOUS
     Route: 058
  4. ACTRAPID PENFILL (INSULIN HUMAN) INJECTION [Suspect]
     Indication: TYPE 2 DIABETES MELLITUS
     Dosage: 38-30 -30 IU, TID, SUBCUTANEOUS
     Route: 058
  5. ALLOPURINOL [Concomitant]
  6. LACTULOSE [Concomitant]
  7. FURORESE (FUROSEMIDE) [Concomitant]
  8. PREGABALIN (PREGABALIN) [Concomitant]
  9. XIPAMIDE (XIPAMIDE) [Concomitant]

REACTIONS (2)
  - DRUG INTERACTION [None]
  - HYPOGLYCAEMIA [None]
